FAERS Safety Report 9991847 (Version 1)
Quarter: 2014Q1

REPORT INFORMATION
  Report Type: Spontaneous
  Country: US (occurrence: US)
  Receive Date: 20140310
  Receipt Date: 20140310
  Transmission Date: 20141002
  Serious: Yes (Other)
  Sender: FDA-Public Use
  Company Number: US-ASTELLAS-2014US000644

PATIENT
  Sex: Male
  Weight: 96 kg

DRUGS (5)
  1. XTANDI [Suspect]
     Indication: PROSTATE CANCER
     Dosage: 160 MG, UID/QD
     Route: 048
     Dates: start: 2013
  2. QUINAPRIL [Concomitant]
     Indication: BLOOD PRESSURE
     Dosage: 20 MG, UID/QD
     Route: 048
     Dates: start: 2007
  3. CITALOPRAM [Concomitant]
     Indication: ANXIETY
     Dosage: 20 MG, UID/QD
     Route: 048
     Dates: start: 2012
  4. LUPRON [Concomitant]
     Indication: PROSTATE CANCER
     Dosage: 1 SYRINGE EVERY 6 MONTHS
     Route: 050
     Dates: start: 2000
  5. B12-VITAMIIN [Concomitant]
     Indication: ENERGY INCREASED
     Dosage: 500 MG, UID/QD
     Route: 048
     Dates: start: 2012

REACTIONS (4)
  - Confusional state [Unknown]
  - Tremor [Unknown]
  - Back pain [Unknown]
  - Dizziness [Unknown]
